FAERS Safety Report 25976904 (Version 1)
Quarter: 2025Q4

REPORT INFORMATION
  Report Type: Spontaneous
  Country: CH (occurrence: CH)
  Receive Date: 20251030
  Receipt Date: 20251030
  Transmission Date: 20260117
  Serious: Yes (Hospitalization)
  Sender: ABBVIE
  Company Number: CH-ABBVIE-6518003

PATIENT
  Sex: Male
  Weight: 3 kg

DRUGS (16)
  1. SKYRIZI [Suspect]
     Active Substance: RISANKIZUMAB-RZAA
     Indication: Maternal exposure timing unspecified
     Dosage: PATIENT ROA: TRANSPLACENTAL
     Route: 065
  2. PREGABALIN [Suspect]
     Active Substance: PREGABALIN
     Indication: Maternal exposure timing unspecified
     Dosage: PATIENT ROA: TRANSPLACENTAL
     Route: 065
  3. HYDROXYZINE [Suspect]
     Active Substance: HYDROXYZINE HYDROCHLORIDE
     Indication: Maternal exposure timing unspecified
     Dosage: PATIENT ROA: TRANSPLACENTAL
     Route: 065
  4. SERTRALINE [Suspect]
     Active Substance: SERTRALINE HYDROCHLORIDE
     Indication: Maternal exposure timing unspecified
     Dosage: PATIENT ROA: TRANSPLACENTAL
     Route: 065
  5. METOCLOPRAMIDE [Suspect]
     Active Substance: METOCLOPRAMIDE
     Indication: Maternal exposure timing unspecified
     Dosage: PATIENT ROA: TRANSPLACENTAL
     Route: 065
  6. PAROXETINE [Suspect]
     Active Substance: PAROXETINE
     Indication: Maternal exposure timing unspecified
     Dosage: PATIENT ROA: TRANSPLACENTAL
     Route: 065
  7. EMEND [Suspect]
     Active Substance: APREPITANT
     Indication: Maternal exposure timing unspecified
     Dosage: PATIENT ROA: TRANSPLACENTAL
     Route: 065
  8. MORPHINE SULFATE [Suspect]
     Active Substance: MORPHINE SULFATE
     Indication: Maternal exposure timing unspecified
     Dosage: PATIENT ROA: TRANSPLACENTAL
     Route: 065
  9. VALTREX [Suspect]
     Active Substance: VALACYCLOVIR HYDROCHLORIDE
     Indication: Maternal exposure timing unspecified
     Dosage: PATIENT ROA: TRANSPLACENTAL
     Route: 065
  10. FOLIC ACID [Suspect]
     Active Substance: FOLIC ACID
     Indication: Maternal exposure timing unspecified
     Dosage: PATIENT ROA: TRANSPLACENTAL
     Route: 065
  11. CALCIUM CARBONATE\CHOLECALCIFEROL [Suspect]
     Active Substance: CALCIUM CARBONATE\CHOLECALCIFEROL
     Indication: Maternal exposure timing unspecified
     Dosage: PATIENT ROA: TRANSPLACENTAL
     Route: 065
  12. BIPERIDEN [Suspect]
     Active Substance: BIPERIDEN
     Indication: Maternal exposure timing unspecified
     Dosage: PATIENT ROA: TRANSPLACENTAL
     Route: 065
  13. SODIUM PHOSPHATE [Suspect]
     Active Substance: SODIUM PHOSPHATE
     Indication: Maternal exposure timing unspecified
     Dosage: PATIENT ROA: TRANSPLACENTAL
     Route: 065
  14. MOVICOL [Suspect]
     Active Substance: POLYETHYLENE GLYCOL 3350\POTASSIUM CHLORIDE\SODIUM BICARBONATE\SODIUM CHLORIDE
     Indication: Maternal exposure timing unspecified
     Dosage: PATIENT ROA: TRANSPLACENTAL
     Route: 065
  15. ACETAMINOPHEN [Suspect]
     Active Substance: ACETAMINOPHEN
     Indication: Maternal exposure timing unspecified
     Dosage: PATIENT ROA: TRANSPLACENTAL
     Route: 065
  16. APREPITANT [Suspect]
     Active Substance: APREPITANT
     Indication: Maternal exposure timing unspecified
     Dosage: PATIENT ROA: TRANSPLACENTAL
     Route: 065

REACTIONS (2)
  - Low birth weight baby [Recovering/Resolving]
  - Foetal exposure during pregnancy [Unknown]

NARRATIVE: CASE EVENT DATE: 20250623
